FAERS Safety Report 9431978 (Version 1)
Quarter: 2013Q3

REPORT INFORMATION
  Report Type: Spontaneous
  Country: FR (occurrence: FR)
  Receive Date: 20130731
  Receipt Date: 20130731
  Transmission Date: 20140515
  Serious: Yes (Life-Threatening, Hospitalization)
  Sender: FDA-Public Use
  Company Number: FR-JNJFOC-20130713362

PATIENT
  Age: 54 Year
  Sex: Female

DRUGS (4)
  1. DUROGESIC [Suspect]
     Indication: PAIN
     Route: 062
  2. DUROGESIC [Suspect]
     Indication: PAIN
     Route: 062
     Dates: start: 20130703, end: 20130710
  3. ACTISKENAN [Suspect]
     Indication: PAIN
     Route: 048
     Dates: start: 20130710, end: 20130710
  4. ORAMORPH [Suspect]
     Indication: PAIN
     Route: 048
     Dates: start: 20130710, end: 20130710

REACTIONS (4)
  - Oxygen saturation decreased [Recovered/Resolved]
  - Bradypnoea [Recovered/Resolved]
  - Miosis [Recovered/Resolved]
  - Somnolence [Recovering/Resolving]
